FAERS Safety Report 9761286 (Version 3)
Quarter: 2014Q2

REPORT INFORMATION
  Report Type: Spontaneous
  Country: US (occurrence: US)
  Receive Date: 20131216
  Receipt Date: 20140417
  Transmission Date: 20141212
  Serious: No
  Sender: FDA-Public Use
  Company Number: US-PFIZER INC-2013355557

PATIENT
  Age: 71 Year
  Sex: Female
  Weight: 81.63 kg

DRUGS (7)
  1. LYRICA [Suspect]
     Indication: NEUROPATHY PERIPHERAL
     Dosage: 50 MG, 2X/DAY
     Dates: start: 20131209
  2. LYRICA [Suspect]
     Dosage: UNK
  3. WARFARIN [Concomitant]
     Indication: CHRONIC OBSTRUCTIVE PULMONARY DISEASE
     Dosage: 02 MG, UNK
  4. PERCOCET [Concomitant]
     Indication: PAIN IN EXTREMITY
     Dosage: (OXYCODONE HYDROCHLORIDE 10MG/PARACETAMOL 625MG), 1X/DAY
  5. LISINOPRIL [Concomitant]
     Indication: BLOOD PRESSURE ABNORMAL
     Dosage: 05 MG, UNK
  6. LEVOTHYROXINE [Concomitant]
     Indication: HYPOTHYROIDISM
     Dosage: 50 UG, 1X/DAY
  7. XANAX [Concomitant]
     Dosage: 2 MG, UNK

REACTIONS (2)
  - Hypersomnia [Unknown]
  - Drug ineffective [Unknown]
